FAERS Safety Report 10731618 (Version 1)
Quarter: 2015Q1

REPORT INFORMATION
  Report Type: Spontaneous
  Country: FR (occurrence: FR)
  Receive Date: 20150123
  Receipt Date: 20150123
  Transmission Date: 20150721
  Serious: Yes (Hospitalization)
  Sender: FDA-Public Use
  Company Number: FR-ROCHE-1524774

PATIENT
  Age: 69 Year
  Sex: Male

DRUGS (5)
  1. LIPANTHYL [Suspect]
     Active Substance: FENOFIBRATE
     Indication: HYPERTRIGLYCERIDAEMIA
     Route: 048
     Dates: start: 20140823
  2. UTEPLEX [Concomitant]
     Active Substance: URIDINE 5^-TRIPHOSPHATE SODIUM
     Dosage: 3 AMPOULES IN THE MORNING
     Route: 065
  3. TEGELINE [Suspect]
     Active Substance: HUMAN IMMUNOGLOBULIN G
     Indication: POLYNEUROPATHY CHRONIC
     Route: 065
  4. CELLCEPT [Suspect]
     Active Substance: MYCOPHENOLATE MOFETIL\MYCOPHENOLATE MOFETIL HYDROCHLORIDE
     Indication: PRODUCT USED FOR UNKNOWN INDICATION
     Route: 065
  5. PAROXETINE [Concomitant]
     Active Substance: PAROXETINE\PAROXETINE HYDROCHLORIDE
     Route: 065

REACTIONS (1)
  - Blood creatine phosphokinase increased [Unknown]
